FAERS Safety Report 4759394-X (Version None)
Quarter: 2005Q3

REPORT INFORMATION
  Report Type: 
  Country: None (occurrence: None)
  Receive Date: 20050831
  Receipt Date: 20050818
  Transmission Date: 20060218
  Serious: Yes (Hospitalization)
  Sender: FDA-Public Use
  Company Number: 050098

PATIENT
  Age: 64 Year
  Sex: Female
  Weight: 60.782 kg

DRUGS (5)
  1. HALFLYTELY [Suspect]
     Indication: COLONOSCOPY
     Dosage: 20MG/2L, 1X, PO
     Route: 048
     Dates: start: 20050615
  2. NEXIUM [Concomitant]
  3. CRESTOR [Concomitant]
  4. PRIMPRO [Concomitant]
  5. NIACIN [Concomitant]

REACTIONS (4)
  - COLITIS ISCHAEMIC [None]
  - INFUSION SITE PHLEBITIS [None]
  - PAIN [None]
  - VENOUS THROMBOSIS [None]
